FAERS Safety Report 7604427-6 (Version None)
Quarter: 2011Q3

REPORT INFORMATION
  Report Type: 
  Country: None (occurrence: None)
  Receive Date: 20110712
  Receipt Date: 20110623
  Transmission Date: 20111222
  Serious: Yes (Other)
  Sender: FDA-Public Use
  Company Number: AU-ASTRAZENECA-2011SE38129

PATIENT
  Sex: Female

DRUGS (2)
  1. LITHIUM [Suspect]
     Dosage: NUMBING DOSE OF LITHIUM 8 TIMES
  2. SEROQUEL [Suspect]
     Indication: DEPRESSION
     Dosage: PRESCRIBED WITH TWICE THE MAXIMUM RECOMMENDED DOSE OF SEROQUEL
     Route: 048

REACTIONS (7)
  - RENAL IMPAIRMENT [None]
  - TREMOR [None]
  - OFF LABEL USE [None]
  - TOOTH LOSS [None]
  - BONE LOSS [None]
  - OVERDOSE [None]
  - DIABETES MELLITUS [None]
